FAERS Safety Report 18101645 (Version 6)
Quarter: 2021Q1

REPORT INFORMATION
  Report Type: Spontaneous
  Country: US (occurrence: US)
  Receive Date: 20200801
  Receipt Date: 20210217
  Transmission Date: 20210419
  Serious: Yes (Congenital Anomaly, Other)
  Sender: FDA-Public Use
  Company Number: NVSC2020US214257

PATIENT
  Sex: Female

DRUGS (2)
  1. ZOFRAN [Suspect]
     Active Substance: ONDANSETRON HYDROCHLORIDE
     Indication: FOETAL EXPOSURE DURING PREGNANCY
     Dosage: MOTHER DOSE: 04 MG
     Route: 064
  2. ZOFRAN ODT [Suspect]
     Active Substance: ONDANSETRON HYDROCHLORIDE
     Indication: FOETAL EXPOSURE DURING PREGNANCY
     Route: 064

REACTIONS (50)
  - Cardiac failure congestive [Unknown]
  - Bronchiolitis [Unknown]
  - Effusion [Unknown]
  - Overweight [Unknown]
  - Urticaria [Unknown]
  - Gastroenteritis [Unknown]
  - Cerumen impaction [Unknown]
  - Pyrexia [Unknown]
  - Upper respiratory tract infection [Unknown]
  - Wheezing [Unknown]
  - Dysphonia [Unknown]
  - Cardiac murmur [Unknown]
  - Laryngomalacia [Unknown]
  - Choking [Unknown]
  - Hypertension [Unknown]
  - Stridor [Unknown]
  - Diarrhoea [Unknown]
  - Constipation [Unknown]
  - Sinus bradycardia [Unknown]
  - Atrial septal defect [Unknown]
  - Emotional distress [Unknown]
  - Dyspnoea [Unknown]
  - Retching [Unknown]
  - Pharyngitis [Unknown]
  - Febrile convulsion [Unknown]
  - Ventricular septal defect [Unknown]
  - Injury [Not Recovered/Not Resolved]
  - Deformity [Unknown]
  - Pain [Unknown]
  - Bronchial hyperreactivity [Unknown]
  - Left atrial dilatation [Unknown]
  - Tricuspid valve incompetence [Unknown]
  - Pneumonia [Unknown]
  - Swelling [Unknown]
  - Pruritus [Unknown]
  - Viral infection [Unknown]
  - Arthralgia [Unknown]
  - Mitral valve incompetence [Unknown]
  - Anhedonia [Unknown]
  - Left ventricular dysfunction [Unknown]
  - Eustachian tube dysfunction [Unknown]
  - Anaemia [Unknown]
  - Left ventricular enlargement [Unknown]
  - Decreased appetite [Unknown]
  - Nasal congestion [Unknown]
  - Respiratory distress [Unknown]
  - Foetal exposure during pregnancy [Unknown]
  - Nasopharyngitis [Unknown]
  - Otitis media acute [Unknown]
  - Bronchitis [Unknown]
